FAERS Safety Report 6069722-3 (Version None)
Quarter: 2009Q1

REPORT INFORMATION
  Report Type: 
  Country: None (occurrence: None)
  Receive Date: 20090209
  Receipt Date: 20090129
  Transmission Date: 20090719
  Serious: Yes (Hospitalization)
  Sender: FDA-Public Use
  Company Number: CZ-AMGEN-US330977

PATIENT
  Age: 45 Year
  Sex: Male

DRUGS (10)
  1. ENBREL [Suspect]
     Indication: ANKYLOSING SPONDYLITIS
     Route: 058
     Dates: start: 20080731
  2. ENBREL [Suspect]
     Dosage: UNSPECIFIED
     Dates: start: 20081201
  3. TRANSTEC [Concomitant]
  4. FELODIPINE [Concomitant]
  5. VITAMIN D [Concomitant]
  6. WELLBUTRIN [Concomitant]
  7. EUPHYLLIN [Concomitant]
  8. CALCIUM [Concomitant]
  9. WARFARIN [Concomitant]
  10. XANAX [Concomitant]

REACTIONS (4)
  - HAEMOPHILUS INFECTION [None]
  - PNEUMONIA CHLAMYDIAL [None]
  - PNEUMONIA PRIMARY ATYPICAL [None]
  - RESPIRATORY FAILURE [None]
